FAERS Safety Report 13061550 (Version 1)
Quarter: 2016Q4

REPORT INFORMATION
  Report Type: Spontaneous
  Country: US (occurrence: US)
  Receive Date: 20161226
  Receipt Date: 20161226
  Transmission Date: 20170207
  Serious: No
  Sender: FDA-Public Use
  Company Number: US-NOVEN PHARMACEUTICALS, INC.-US2016000377

PATIENT

DRUGS (5)
  1. SYNTHROID [Concomitant]
     Active Substance: LEVOTHYROXINE SODIUM
  2. MINIVELLE [Suspect]
     Active Substance: ESTRADIOL
     Indication: PALPITATIONS
     Dosage: 0.0375 MG, UNKNOWN
     Route: 062
     Dates: start: 201509, end: 201603
  3. MINIVELLE [Suspect]
     Active Substance: ESTRADIOL
     Indication: ANXIETY
  4. XOPENEX HFA [Concomitant]
     Active Substance: LEVALBUTEROL TARTRATE
  5. PREDNISONE. [Concomitant]
     Active Substance: PREDNISONE

REACTIONS (4)
  - Breast tenderness [Recovering/Resolving]
  - Off label use [Recovered/Resolved]
  - Vaginal haemorrhage [Recovering/Resolving]
  - Insomnia [Recovering/Resolving]

NARRATIVE: CASE EVENT DATE: 201509
